FAERS Safety Report 19827675 (Version 1)
Quarter: 2021Q3

REPORT INFORMATION
  Report Type: Other
  Country: CH (occurrence: CH)
  Receive Date: 20210914
  Receipt Date: 20210914
  Transmission Date: 20211014
  Serious: Yes (Other)
  Sender: FDA-Public Use
  Company Number: CH-ROCHE-2902554

PATIENT
  Sex: Female
  Weight: 28 kg

DRUGS (3)
  1. RISDIPLAM. [Suspect]
     Active Substance: RISDIPLAM
     Indication: SPINAL MUSCULAR ATROPHY
     Dosage: (EXPIRY DATE: 30?SEP?2022)
     Route: 048
     Dates: start: 20210604
  2. RISDIPLAM. [Suspect]
     Active Substance: RISDIPLAM
     Dosage: (EXPIRY DATE: 30?SEP?2022)
     Route: 048
     Dates: start: 20201127
  3. RISDIPLAM. [Suspect]
     Active Substance: RISDIPLAM
     Dosage: DOSE?5MG 1X / DAY, ONGOING (THERAPY START DATE: 30/SEP/2021 AND EXPIRY DATE: 30?SEP?2022)
     Route: 048

REACTIONS (2)
  - Photosensitivity reaction [Recovering/Resolving]
  - Tanning [Recovering/Resolving]

NARRATIVE: CASE EVENT DATE: 2021
